FAERS Safety Report 13439378 (Version 1)
Quarter: 2017Q2

REPORT INFORMATION
  Report Type: Spontaneous
  Country: GR (occurrence: GR)
  Receive Date: 20170413
  Receipt Date: 20170413
  Transmission Date: 20170830
  Serious: Yes (Hospitalization)
  Sender: FDA-Public Use
  Company Number: GR-FRESENIUS KABI-FK201703072

PATIENT
  Age: 67 Year
  Sex: Female

DRUGS (5)
  1. PROPOFOL (MANUFACTURER UNKNOWN) [Suspect]
     Active Substance: PROPOFOL
     Indication: ANAESTHESIA
     Route: 065
  2. PROPOFOL (MANUFACTURER UNKNOWN) [Suspect]
     Active Substance: PROPOFOL
     Route: 065
  3. ROCURONIUM [Suspect]
     Active Substance: ROCURONIUM BROMIDE
     Indication: ANAESTHESIA
     Route: 065
  4. ROCURONIUM [Suspect]
     Active Substance: ROCURONIUM BROMIDE
     Route: 065
  5. SUGAMMADEX [Concomitant]
     Active Substance: SUGAMMADEX
     Indication: NEUROMUSCULAR BLOCKADE

REACTIONS (3)
  - Loss of consciousness [Recovered/Resolved]
  - Respiratory depression [Recovered/Resolved]
  - Extravasation [Recovered/Resolved]
